FAERS Safety Report 6987143-3 (Version None)
Quarter: 2010Q3

REPORT INFORMATION
  Report Type: 
  Country: None (occurrence: None)
  Receive Date: 20100916
  Receipt Date: 20100907
  Transmission Date: 20110219
  Serious: Yes (Hospitalization)
  Sender: FDA-Public Use
  Company Number: FR-KINGPHARMUSA00001-K201001133

PATIENT
  Age: 55 Year
  Sex: Male

DRUGS (18)
  1. ALTACE [Suspect]
     Dosage: 1.25 MG, BID
     Route: 048
     Dates: start: 20100730, end: 20100805
  2. PRIMPERAN TAB [Suspect]
     Indication: CHOLESTASIS
     Dosage: 10 MG, SINGLE
     Route: 042
     Dates: start: 20100730, end: 20100730
  3. PRIMPERAN TAB [Suspect]
     Dosage: 10 MG, SINGLE
     Route: 048
     Dates: start: 20100804, end: 20100804
  4. TERCIAN [Suspect]
     Dosage: 10 MG, QID
     Route: 048
     Dates: start: 20100729, end: 20100805
  5. DIPRIVAN [Suspect]
     Dosage: UNK, QD
     Route: 042
     Dates: start: 20100727, end: 20100803
  6. ESOMEPRAZOLE MAGNESIUM [Suspect]
     Dosage: UNK, QD
     Route: 048
     Dates: start: 20100727, end: 20100806
  7. CRESTOR [Suspect]
     Dosage: 5 MG, QD
     Route: 048
     Dates: start: 20100727, end: 20100805
  8. HEPARIN SODIUM [Suspect]
     Dosage: UNK, QD
     Route: 058
     Dates: start: 20100729, end: 20100803
  9. ERYTHROMYCIN [Suspect]
     Indication: CHOLESTASIS
     Dosage: 200 MG, SINGLE
     Route: 042
     Dates: start: 20100730, end: 20100730
  10. ERYTHROMYCIN [Suspect]
     Dosage: 200 MG, SINGLE
     Route: 042
     Dates: start: 20100804, end: 20100804
  11. DOBUTAMINE HCL [Concomitant]
     Dosage: UNK
     Dates: start: 20100727
  12. KARDEGIC [Concomitant]
     Dosage: UNK
     Dates: start: 20100727
  13. INSULIN [Concomitant]
     Dosage: UNK
     Dates: start: 20100727
  14. SUFENTANIL CITRATE [Concomitant]
     Dosage: UNK
     Dates: start: 20100729
  15. NORADRENALINE [Concomitant]
     Dosage: UNK
     Dates: start: 20100701, end: 20100801
  16. HYPNOVEL [Concomitant]
     Dosage: UNK
     Dates: start: 20100730
  17. ROCEPHIN [Concomitant]
     Dosage: UNK
     Dates: start: 20100802
  18. BUMEX [Concomitant]
     Dosage: UNK
     Dates: start: 20100802, end: 20100807

REACTIONS (12)
  - BRADYCARDIA [None]
  - BRONCHITIS HAEMOPHILUS [None]
  - CARDIAC TAMPONADE [None]
  - CELL DEATH [None]
  - CHOLESTASIS [None]
  - CYTOLYTIC HEPATITIS [None]
  - EXTRASYSTOLES [None]
  - HAEMODYNAMIC INSTABILITY [None]
  - HEPATOCELLULAR INJURY [None]
  - HYPERBILIRUBINAEMIA [None]
  - PROTHROMBIN TIME PROLONGED [None]
  - RENAL IMPAIRMENT [None]
